FAERS Safety Report 21859168 (Version 4)
Quarter: 2023Q2

REPORT INFORMATION
  Report Type: Report from Study
  Country: US (occurrence: None)
  Receive Date: 20230113
  Receipt Date: 20230425
  Transmission Date: 20230722
  Serious: Yes (Hospitalization)
  Sender: FDA-Public Use
  Company Number: US-ROCHE-3253061

PATIENT
  Age: 72 Year
  Sex: Male
  Weight: 81.1 kg

DRUGS (10)
  1. MOSUNETUZUMAB [Suspect]
     Active Substance: MOSUNETUZUMAB
     Indication: Follicular lymphoma
     Dosage: DOSE LAST STUDY DRUG ADMIN PRIOR AE/SAE WAS 45 MG?ON 22/DEC/2022, MOST RECENT DOSE OF STUDY DRUG PRI
     Route: 058
     Dates: start: 20221103
  2. LENALIDOMIDE [Suspect]
     Active Substance: LENALIDOMIDE
     Indication: Follicular lymphoma
     Dosage: START DATE OF MOST RECENT DOSE OF STUDY DRUG PRIOR TO AE/SAE: 22/DEC/2022?DOSE LAST STUDY DRUG ADMIN
     Route: 048
     Dates: start: 20221121
  3. ALLOPURINOL [Concomitant]
     Active Substance: ALLOPURINOL
     Dosage: 1 TABLET
     Route: 048
     Dates: start: 20221031
  4. CHOLECALCIFEROL [Concomitant]
     Active Substance: CHOLECALCIFEROL
     Indication: Vitamin D
     Dosage: 1 TABLET
     Route: 048
     Dates: start: 20220912
  5. CLONAZEPAM [Concomitant]
     Active Substance: CLONAZEPAM
     Indication: Bipolar disorder
     Dosage: 1 TABLET
     Route: 048
     Dates: start: 20220912
  6. ESZOPICLONE [Concomitant]
     Active Substance: ESZOPICLONE
     Route: 048
     Dates: start: 20220731
  7. FLUOXETINE [Concomitant]
     Active Substance: FLUOXETINE HYDROCHLORIDE
     Indication: Bipolar disorder
     Route: 048
     Dates: start: 20221023
  8. LAMOTRIGINE [Concomitant]
     Active Substance: LAMOTRIGINE
     Indication: Bipolar disorder
     Dosage: 1 TABLET
     Route: 048
     Dates: start: 20221023
  9. ROSUVASTATIN [Concomitant]
     Active Substance: ROSUVASTATIN
     Dosage: 1 TABLET
     Route: 048
     Dates: start: 20220714
  10. DEXAMETHASONE [Concomitant]
     Active Substance: DEXAMETHASONE
     Dosage: 5 TABLET
     Route: 048
     Dates: start: 20221104

REACTIONS (1)
  - Injection site reaction [Recovered/Resolved]

NARRATIVE: CASE EVENT DATE: 20221226
